FAERS Safety Report 8414911-3 (Version None)
Quarter: 2012Q2

REPORT INFORMATION
  Report Type: 
  Country: None (occurrence: None)
  Receive Date: 20120601
  Receipt Date: 20120601
  Transmission Date: 20120825
  Serious: Yes (Other)
  Sender: FDA-Public Use
  Company Number: None

PATIENT
  Sex: Male
  Weight: 113.3993 kg

DRUGS (1)
  1. CYMBALTA [Suspect]
     Indication: ANXIETY
     Dosage: 60 MG 1 PER DAY PO
     Route: 048
     Dates: start: 20120101, end: 20120531

REACTIONS (3)
  - NAUSEA [None]
  - INSOMNIA [None]
  - DEPRESSION [None]
